FAERS Safety Report 6595713-X (Version None)
Quarter: 2010Q1

REPORT INFORMATION
  Report Type: 
  Country: None (occurrence: None)
  Receive Date: 20100216
  Receipt Date: 20100202
  Transmission Date: 20100710
  Serious: Yes (Hospitalization)
  Sender: FDA-Public Use
  Company Number: AMAG201000066

PATIENT
  Age: 67 Year
  Sex: Male
  Weight: 71 kg

DRUGS (10)
  1. FERAHEME [Suspect]
     Indication: IRON DEFICIENCY ANAEMIA
     Dosage: 2 ML, (60 MG) SINGLE, INTRAVENOUS
     Route: 042
     Dates: start: 20100113, end: 20100113
  2. EPOGEN [Concomitant]
  3. HEPARIN [Concomitant]
  4. BACLOFEN [Concomitant]
  5. CALCIUM CARBONATE [Concomitant]
  6. DONNATAL [Concomitant]
  7. LOMOTIL [Concomitant]
  8. MAG OX [Concomitant]
  9. PERCOCET [Concomitant]
  10. ENGERIX-B [Concomitant]

REACTIONS (4)
  - ANAPHYLACTIC REACTION [None]
  - FAECAL INCONTINENCE [None]
  - NO THERAPEUTIC RESPONSE [None]
  - URINARY INCONTINENCE [None]
